FAERS Safety Report 8542513-7 (Version None)
Quarter: 2012Q3

REPORT INFORMATION
  Report Type: 
  Country: None (occurrence: None)
  Receive Date: 20120726
  Receipt Date: 20110804
  Transmission Date: 20120928
  Serious: Yes (Hospitalization)
  Sender: FDA-Public Use
  Company Number: US-ASTRAZENECA-2011SE47032

PATIENT
  Age: 68 Year
  Sex: Male
  Weight: 108.9 kg

DRUGS (2)
  1. SEROQUEL XR [Suspect]
     Route: 048
  2. PRESTIQUE [Concomitant]

REACTIONS (1)
  - MALAISE [None]
